FAERS Safety Report 4342843-9 (Version None)
Quarter: 2004Q2

REPORT INFORMATION
  Report Type: 
  Country: None (occurrence: None)
  Receive Date: 20040416
  Receipt Date: 20040407
  Transmission Date: 20050107
  Serious: Yes (Other)
  Sender: FDA-Public Use
  Company Number: 200411040BCC

PATIENT
  Age: 20 Year
  Sex: Male
  Weight: 92.9874 kg

DRUGS (2)
  1. ALEVE [Suspect]
     Indication: PAIN IN EXTREMITY
     Dosage: SEE IMAGE
     Route: 048
     Dates: start: 20040101, end: 20040228
  2. ALEVE [Suspect]
     Indication: PAIN IN EXTREMITY
     Dosage: SEE IMAGE
     Route: 048
     Dates: start: 20040301

REACTIONS (1)
  - BLOOD PRESSURE INCREASED [None]
